FAERS Safety Report 5251723-6 (Version None)
Quarter: 2007Q1

REPORT INFORMATION
  Report Type: 
  Country: None (occurrence: None)
  Receive Date: 20070228
  Receipt Date: 20061106
  Transmission Date: 20070707
  Serious: No
  Sender: FDA-Public Use
  Company Number: US-GLAXOSMITHKLINE-A0624245A

PATIENT
  Age: 71 Year
  Sex: Male

DRUGS (3)
  1. LAMICTAL [Suspect]
     Indication: BIPOLAR DISORDER
     Dosage: 150MG PER DAY
     Route: 048
     Dates: start: 20060526
  2. WELLBUTRIN XL [Concomitant]
     Indication: BIPOLAR DISORDER
     Dosage: 300MG PER DAY
     Route: 048
  3. TRAZODONE HCL [Concomitant]

REACTIONS (1)
  - EYE DISORDER [None]
